FAERS Safety Report 19366013 (Version 1)
Quarter: 2021Q2

REPORT INFORMATION
  Report Type: Spontaneous
  Country: US (occurrence: US)
  Receive Date: 20210603
  Receipt Date: 20210603
  Transmission Date: 20210717
  Serious: Yes (Hospitalization, Disabling)
  Sender: FDA-Public Use
  Company Number: None

PATIENT
  Age: 42 Year
  Sex: Male
  Weight: 67.5 kg

DRUGS (1)
  1. CIPROFLAXIN [Suspect]
     Active Substance: CIPROFLOXACIN
     Indication: URINARY TRACT INFECTION
     Route: 048

REACTIONS (11)
  - Drug interaction [None]
  - Memory impairment [None]
  - Speech disorder [None]
  - Tendonitis [None]
  - Hallucination, auditory [None]
  - Headache [None]
  - Anxiety [None]
  - Communication disorder [None]
  - Insomnia [None]
  - Paranoia [None]
  - Confusional state [None]

NARRATIVE: CASE EVENT DATE: 20200611
